APPROVED DRUG PRODUCT: PRAMIPEXOLE DIHYDROCHLORIDE
Active Ingredient: PRAMIPEXOLE DIHYDROCHLORIDE
Strength: 0.125MG
Dosage Form/Route: TABLET;ORAL
Application: A091254 | Product #001
Applicant: HERITAGE PHARMA LABS INC DBA AVET PHARMACEUTICALS LABS INC
Approved: Nov 30, 2010 | RLD: No | RS: No | Type: DISCN